FAERS Safety Report 16899816 (Version 1)
Quarter: 2019Q4

REPORT INFORMATION
  Report Type: Spontaneous
  Country: US (occurrence: US)
  Receive Date: 20190815
  Receipt Date: 20190815
  Transmission Date: 20200122
  Serious: Yes (Hospitalization)
  Sender: FDA-Public Use
  Company Number: None

PATIENT
  Age: 74 Year
  Sex: Male
  Weight: 64.23 kg

DRUGS (6)
  1. PALONOSETRON. [Concomitant]
     Active Substance: PALONOSETRON HYDROCHLORIDE
     Dates: end: 20190715
  2. ETOPOSIDE. [Concomitant]
     Active Substance: ETOPOSIDE
  3. CISPLATIN. [Concomitant]
     Active Substance: CISPLATIN
  4. FOSAPREPITANT DIMEGLUMINE. [Suspect]
     Active Substance: FOSAPREPITANT DIMEGLUMINE
  5. ALOXI [Suspect]
     Active Substance: PALONOSETRON HYDROCHLORIDE
     Dosage: ?          OTHER DOSE:.25MG;?
     Dates: end: 20190718
  6. DEXAMETHASONE (34521) [Suspect]
     Active Substance: DEXAMETHASONE
     Dates: end: 20190718

REACTIONS (25)
  - Acute myocardial infarction [None]
  - Groin pain [None]
  - Hypotension [None]
  - Myocardial ischaemia [None]
  - Blood creatinine increased [None]
  - Blood bilirubin increased [None]
  - Collateral circulation [None]
  - Anaemia [None]
  - Nodal rhythm [None]
  - Thrombocytopenia [None]
  - Hyponatraemia [None]
  - Coronary artery occlusion [None]
  - Alanine aminotransferase increased [None]
  - Atrial fibrillation [None]
  - Pancreatitis [None]
  - International normalised ratio increased [None]
  - Ventricular extrasystoles [None]
  - Gallbladder enlargement [None]
  - Hypoalbuminaemia [None]
  - Cholelithiasis [None]
  - Vascular pseudoaneurysm [None]
  - Asthenia [None]
  - Catheter site haematoma [None]
  - Hyperkalaemia [None]
  - Aspartate aminotransferase increased [None]

NARRATIVE: CASE EVENT DATE: 20190727
